FAERS Safety Report 15110547 (Version 1)
Quarter: 2018Q2

REPORT INFORMATION
  Report Type: Spontaneous
  Country: US (occurrence: US)
  Receive Date: 20180612
  Receipt Date: 20180612
  Transmission Date: 20180711
  Serious: No
  Sender: FDA-Public Use
  Company Number: None

PATIENT
  Age: 60 Year
  Sex: Female

DRUGS (1)
  1. HUMIRA [Suspect]
     Active Substance: ADALIMUMAB
     Indication: SCLERITIS
     Dosage: ?          OTHER FREQUENCY:EVERY 2 WEEKS ;?
     Route: 058
     Dates: start: 201711

REACTIONS (3)
  - Erythema [None]
  - Peripheral swelling [None]
  - Feeling hot [None]

NARRATIVE: CASE EVENT DATE: 20180605
